FAERS Safety Report 17636970 (Version 1)
Quarter: 2020Q2

REPORT INFORMATION
  Report Type: Spontaneous
  Country: PR (occurrence: PR)
  Receive Date: 20200405
  Receipt Date: 20200405
  Transmission Date: 20200713
  Serious: Yes (Disabling)
  Sender: FDA-Public Use
  Company Number: None

PATIENT
  Age: 40 Year
  Sex: Female
  Weight: 81.45 kg

DRUGS (10)
  1. CALTRATE [Concomitant]
     Active Substance: CALCIUM CARBONATE
  2. VIT B 12 [Concomitant]
     Active Substance: CYANOCOBALAMIN
  3. CLONAZEPAM ODT 0.5MG [Suspect]
     Active Substance: CLONAZEPAM
     Indication: ANXIETY
     Dosage: ?          QUANTITY:1 TABLET(S);?
     Route: 048
  4. ENALAPRIL [Concomitant]
     Active Substance: ENALAPRIL
  5. XARELTO [Concomitant]
     Active Substance: RIVAROXABAN
  6. LIPITOR [Concomitant]
     Active Substance: ATORVASTATIN CALCIUM
  7. METOPROLOL. [Concomitant]
     Active Substance: METOPROLOL
  8. VIT D [Concomitant]
     Active Substance: VITAMIN D NOS
  9. AMBIEN [Concomitant]
     Active Substance: ZOLPIDEM TARTRATE
  10. CLONAZEPAM ODT 0.5MG [Suspect]
     Active Substance: CLONAZEPAM
     Indication: PANIC ATTACK
     Dosage: ?          QUANTITY:1 TABLET(S);?
     Route: 048

REACTIONS (2)
  - Dyspnoea [None]
  - Periorbital swelling [None]

NARRATIVE: CASE EVENT DATE: 20200404
